FAERS Safety Report 11566062 (Version 1)
Quarter: 2015Q3

REPORT INFORMATION
  Report Type: Spontaneous
  Country: US (occurrence: US)
  Receive Date: 20150916
  Receipt Date: 20150916
  Transmission Date: 20151125
  Serious: No
  Sender: FDA-Public Use
  Company Number: US-ELI_LILLY_AND_COMPANY-US200905004498

PATIENT
  Age: 81 Year
  Sex: Female

DRUGS (10)
  1. FORTEO [Suspect]
     Active Substance: TERIPARATIDE
     Indication: OSTEOPOROSIS
     Dosage: 20 UG, DAILY (1/D)
     Dates: start: 200901
  2. VERAPAMIL [Concomitant]
     Active Substance: VERAPAMIL HYDROCHLORIDE
  3. TUMS [Concomitant]
     Active Substance: CALCIUM CARBONATE
  4. THYROXINE [Concomitant]
     Active Substance: LEVOTHYROXINE
  5. ZOCOR [Concomitant]
     Active Substance: SIMVASTATIN
  6. BABY ASPIRIN [Concomitant]
     Active Substance: ASPIRIN
  7. CENTRUM [Concomitant]
     Active Substance: VITAMINS
  8. OMEPRAZOLE. [Concomitant]
     Active Substance: OMEPRAZOLE
  9. DIOVAN [Concomitant]
     Active Substance: VALSARTAN
  10. CALCIUM + VITAMIN D [Concomitant]
     Active Substance: CALCIUM\VITAMIN D

REACTIONS (5)
  - Blood calcium increased [Not Recovered/Not Resolved]
  - Hypertension [Not Recovered/Not Resolved]
  - Onychoclasis [Recovering/Resolving]
  - Headache [Not Recovered/Not Resolved]
  - Nail discolouration [Recovering/Resolving]

NARRATIVE: CASE EVENT DATE: 2009
